FAERS Safety Report 17505464 (Version 1)
Quarter: 2020Q1

REPORT INFORMATION
  Report Type: Spontaneous
  Country: US (occurrence: US)
  Receive Date: 20200305
  Receipt Date: 20200305
  Transmission Date: 20200409
  Serious: No
  Sender: FDA-Public Use
  Company Number: US-BAYER-2020-037705

PATIENT
  Sex: Female
  Weight: 90 kg

DRUGS (2)
  1. METFORMIN [Concomitant]
     Active Substance: METFORMIN HYDROCHLORIDE
  2. GADAVIST [Suspect]
     Active Substance: GADOBUTROL
     Indication: JOINT SWELLING
     Dosage: 9 ML
     Route: 042
     Dates: start: 20200302

REACTIONS (3)
  - Pyrexia [None]
  - Pruritus [Recovered/Resolved]
  - Influenza [None]
